FAERS Safety Report 21300413 (Version 1)
Quarter: 2022Q3

REPORT INFORMATION
  Report Type: Spontaneous
  Country: BR (occurrence: BR)
  Receive Date: 20220907
  Receipt Date: 20220907
  Transmission Date: 20221027
  Serious: No
  Sender: FDA-Public Use
  Company Number: BR-LUPIN PHARMACEUTICALS INC.-2022-10856

PATIENT
  Age: 39 Year
  Sex: Female

DRUGS (15)
  1. SULFAMETHOXAZOLE AND TRIMETHOPRIM [Suspect]
     Active Substance: SULFAMETHOXAZOLE\TRIMETHOPRIM
     Indication: Toxoplasmosis prophylaxis
     Dosage: UNK
     Route: 048
  2. SULFAMETHOXAZOLE AND TRIMETHOPRIM [Suspect]
     Active Substance: SULFAMETHOXAZOLE\TRIMETHOPRIM
     Indication: Toxoplasmosis
     Dosage: UNK, CONCENTRATION:- 9800MG/160MG
     Route: 048
  3. SULFAMETHOXAZOLE AND TRIMETHOPRIM [Suspect]
     Active Substance: SULFAMETHOXAZOLE\TRIMETHOPRIM
     Dosage: UNK, THREE DAYS PER WEEK
     Route: 048
  4. PREDNISONE [Suspect]
     Active Substance: PREDNISONE
     Indication: Toxoplasmosis
     Dosage: 40 MG, QD
     Route: 048
  5. CLINDAMYCIN [Concomitant]
     Active Substance: CLINDAMYCIN
     Indication: Toxoplasmosis
     Dosage: UNK, SLOW RELEASE IMPLANT;THE IMPLANT CONSISTED OF POLY LACTIC-CO-GLYCOLIC ACID (PLGA)/POLY(LACTIC A
  6. CLINDAMYCIN [Concomitant]
     Active Substance: CLINDAMYCIN
     Dosage: 1 MG
  7. CLINDAMYCIN [Concomitant]
     Active Substance: CLINDAMYCIN
     Dosage: 0.1 MILLILITER, RECEIVED AT MONTHS ONE, TWO AND THREE FOLLOWING INJECTION OF THE SLOW-RELEASE CLINDA
  8. DEXAMETHASONE [Concomitant]
     Active Substance: DEXAMETHASONE
     Indication: Toxoplasmosis
     Dosage: UNK
     Route: 061
  9. DEXAMETHASONE [Concomitant]
     Active Substance: DEXAMETHASONE
     Indication: Toxoplasmosis prophylaxis
     Dosage: UNK
     Route: 061
  10. DEXAMETHASONE [Concomitant]
     Active Substance: DEXAMETHASONE
     Dosage: 1 MG
     Route: 065
  11. DEXAMETHASONE [Concomitant]
     Active Substance: DEXAMETHASONE
     Dosage: UNK
     Route: 061
  12. DEXAMETHASONE [Concomitant]
     Active Substance: DEXAMETHASONE
     Dosage: UNK, RECEIVED AT MONTHS ONE, TWO AND THREE FOLLOWING INJECTION OF THE SLOW-RELEASE CLINDAMYCIN IMPLA
     Route: 065
  13. TROPICAMIDE [Concomitant]
     Active Substance: TROPICAMIDE
     Indication: Toxoplasmosis
     Dosage: UNK
     Route: 061
  14. TROPICAMIDE [Concomitant]
     Active Substance: TROPICAMIDE
     Dosage: UNK
     Route: 061
  15. DEXAMETHASONE SODIUM PHOSPHATE\MOXIFLOXACIN HYDROCHLORIDE [Concomitant]
     Active Substance: DEXAMETHASONE SODIUM PHOSPHATE\MOXIFLOXACIN HYDROCHLORIDE
     Indication: Toxoplasmosis
     Dosage: UNK, QID
     Route: 065

REACTIONS (1)
  - Skin disorder [Unknown]
